FAERS Safety Report 8287509-8 (Version None)
Quarter: 2012Q2

REPORT INFORMATION
  Report Type: 
  Country: None (occurrence: None)
  Receive Date: 20120416
  Receipt Date: 20120405
  Transmission Date: 20120825
  Serious: Yes (Other)
  Sender: FDA-Public Use
  Company Number: ES-ELI_LILLY_AND_COMPANY-ES201204003821

PATIENT
  Age: 75 Year
  Sex: Male

DRUGS (3)
  1. NALOXONE [Concomitant]
     Indication: PAIN
     Dosage: 5 MG, BID
     Route: 048
     Dates: start: 20120307
  2. ALIMTA [Suspect]
     Indication: LUNG NEOPLASM MALIGNANT
     Dosage: UNK, EVERY THREE WEEKS
     Dates: start: 20120305
  3. NALOXONE [Concomitant]
     Dosage: 2.5 MG, BID
     Route: 048

REACTIONS (1)
  - DYSPNOEA [None]
